FAERS Safety Report 9781243 (Version 1)
Quarter: 2013Q4

REPORT INFORMATION
  Report Type: Spontaneous
  Country: US (occurrence: None)
  Receive Date: 20131223
  Receipt Date: 20131223
  Transmission Date: 20140711
  Serious: Yes (Other)
  Sender: FDA-Public Use
  Company Number: None

PATIENT
  Sex: Female
  Weight: 28.9 kg

DRUGS (1)
  1. LAMICTAL XR TABLETS [Suspect]
     Indication: EPILEPSY
     Dosage: 30 TABS, 1 DAILY, ORALLY
     Dates: start: 201310

REACTIONS (2)
  - Abnormal behaviour [None]
  - Emotional disorder [None]
